FAERS Safety Report 18590111 (Version 1)
Quarter: 2020Q4

REPORT INFORMATION
  Report Type: Spontaneous
  Country: US (occurrence: US)
  Receive Date: 20201207
  Receipt Date: 20201207
  Transmission Date: 20210114
  Serious: No
  Sender: FDA-Public Use
  Company Number: None

PATIENT
  Sex: Female

DRUGS (1)
  1. REMICADE [Suspect]
     Active Substance: INFLIXIMAB
     Indication: CROHN^S DISEASE
     Dosage: ?          OTHER FREQUENCY:EVERY 5 WKS;?
     Route: 042
     Dates: start: 202009, end: 202011

REACTIONS (7)
  - Paraesthesia [None]
  - Rash [None]
  - Urticaria [None]
  - Tachycardia [None]
  - Therapy cessation [None]
  - Hypoaesthesia [None]
  - Dyspnoea [None]
